FAERS Safety Report 4384640-4 (Version None)
Quarter: 2004Q2

REPORT INFORMATION
  Report Type: 
  Country: None (occurrence: None)
  Receive Date: 20040625
  Receipt Date: 20031205
  Transmission Date: 20050107
  Serious: No
  Sender: FDA-Public Use
  Company Number: US-BRISTOL-MYERS SQUIBB COMPANY-12451498

PATIENT
  Age: 60 Year
  Sex: Female
  Weight: 48 kg

DRUGS (5)
  1. SINEMET CR [Suspect]
     Indication: PARKINSON'S DISEASE
     Dosage: 25MG/100MG TABLETS
     Route: 048
     Dates: start: 19990101
  2. LODOSYN [Suspect]
     Indication: PARKINSON'S DISEASE
     Dosage: TAKES 1/2 OF A 25MG TABLET
     Route: 048
     Dates: start: 19990101
  3. AVAPRO [Concomitant]
  4. REQUIP [Concomitant]
  5. ESTROGEN + PROGESTERONE [Concomitant]

REACTIONS (1)
  - DRUG INEFFECTIVE [None]
